FAERS Safety Report 7538959-6 (Version None)
Quarter: 2011Q2

REPORT INFORMATION
  Report Type: 
  Country: None (occurrence: None)
  Receive Date: 20110610
  Receipt Date: 20110516
  Transmission Date: 20111010
  Serious: Yes (Other)
  Sender: FDA-Public Use
  Company Number: US-BAYER-2011-007705

PATIENT
  Age: 28 Year
  Sex: Female
  Weight: 65 kg

DRUGS (27)
  1. PRILOSEC [Concomitant]
     Indication: DYSPEPSIA
     Dosage: UNK
     Dates: start: 20080101
  2. BUSPIRONE HCL [Concomitant]
     Indication: PANIC ATTACK
     Dosage: UNK
     Dates: start: 20050101, end: 20080101
  3. SERTRALINE HYDROCHLORIDE [Concomitant]
     Indication: POST-TRAUMATIC STRESS DISORDER
  4. LORAZEPAM [Concomitant]
     Indication: POST-TRAUMATIC STRESS DISORDER
  5. METAMUCIL-2 [Concomitant]
     Indication: CONSTIPATION
  6. CLONAZEPAM [Concomitant]
     Indication: PANIC ATTACK
     Dosage: UNK
     Dates: start: 20050101, end: 20100101
  7. CLONAZEPAM [Concomitant]
     Indication: ANXIETY
  8. CYMBALTA [Concomitant]
     Indication: ANXIETY
  9. CYMBALTA [Concomitant]
     Indication: POST-TRAUMATIC STRESS DISORDER
  10. LORAZEPAM [Concomitant]
     Indication: ANXIETY
  11. ADVAIR DISKUS 100/50 [Concomitant]
     Dosage: UNK
     Dates: start: 20080101
  12. CYMBALTA [Concomitant]
     Indication: PANIC ATTACK
     Dosage: UNK
     Dates: start: 20090101, end: 20090101
  13. PRILOSEC [Concomitant]
     Indication: ABDOMINAL DISCOMFORT
  14. TIZANIDINE HCL [Concomitant]
     Indication: VIITH NERVE PARALYSIS
     Dosage: UNK
     Dates: start: 20080101, end: 20100101
  15. LUNESTA [Concomitant]
     Indication: SLEEP DISORDER
     Dosage: UNK
     Dates: start: 20070101, end: 20080101
  16. BACLOFEN [Concomitant]
     Indication: POST-TRAUMATIC STRESS DISORDER
  17. YASMIN [Suspect]
     Indication: PRODUCT USED FOR UNKNOWN INDICATION
     Dosage: UNK
     Route: 048
     Dates: start: 20071201, end: 20080401
  18. SERTRALINE HYDROCHLORIDE [Concomitant]
     Indication: PANIC ATTACK
     Dosage: UNK
     Dates: start: 20070101, end: 20100101
  19. SERTRALINE HYDROCHLORIDE [Concomitant]
     Indication: ANXIETY
  20. LORAZEPAM [Concomitant]
     Indication: PANIC ATTACK
     Dosage: UNK
     Dates: start: 20050101, end: 20090101
  21. BUSPIRONE HCL [Concomitant]
     Indication: POST-TRAUMATIC STRESS DISORDER
  22. BACLOFEN [Concomitant]
     Indication: PANIC ATTACK
     Dosage: UNK
     Dates: start: 20080101
  23. BACLOFEN [Concomitant]
     Indication: ANXIETY
  24. CLONAZEPAM [Concomitant]
     Indication: POST-TRAUMATIC STRESS DISORDER
  25. BUSPIRONE HCL [Concomitant]
     Indication: ANXIETY
  26. ZYRTEC [Concomitant]
     Dosage: UNK
     Dates: start: 20080101
  27. ANTACIDS [Concomitant]

REACTIONS (10)
  - DYSPEPSIA [None]
  - CHANGE OF BOWEL HABIT [None]
  - ABDOMINAL PAIN [None]
  - ABDOMINAL PAIN UPPER [None]
  - BILIARY DYSKINESIA [None]
  - BILIARY TRACT DISORDER [None]
  - ABDOMINAL DISTENSION [None]
  - NAUSEA [None]
  - DIARRHOEA [None]
  - PAIN [None]
